FAERS Safety Report 15483171 (Version 1)
Quarter: 2018Q4

REPORT INFORMATION
  Report Type: Spontaneous
  Country: CA (occurrence: CA)
  Receive Date: 20181010
  Receipt Date: 20181010
  Transmission Date: 20190205
  Serious: Yes (Other)
  Sender: FDA-Public Use
  Company Number: CA-PFIZER INC-2012294911

PATIENT
  Age: 32 Year
  Sex: Female

DRUGS (13)
  1. HYDROMORPH CONTIN [Suspect]
     Active Substance: HYDROMORPHONE
     Dosage: UNK
     Route: 042
  2. OXYCONTIN [Suspect]
     Active Substance: OXYCODONE HYDROCHLORIDE
     Dosage: UNK
     Route: 042
  3. COCAINE [Suspect]
     Active Substance: COCAINE
     Dosage: UNK
     Route: 065
  4. NICOTINE. [Suspect]
     Active Substance: NICOTINE
     Dosage: UNK
     Route: 055
  5. AMPHETAMINE [Suspect]
     Active Substance: AMPHETAMINE
     Dosage: UNK
     Route: 065
  6. HYDROMORPH CONTIN [Suspect]
     Active Substance: HYDROMORPHONE
     Dosage: UNK
     Route: 045
  7. DILAUDID [Suspect]
     Active Substance: HYDROMORPHONE HYDROCHLORIDE
     Dosage: UNK
     Route: 065
  8. MORPHINE SULFATE. [Suspect]
     Active Substance: MORPHINE SULFATE
     Dosage: UNK
     Route: 065
  9. MESCALINE [Suspect]
     Active Substance: MESCALINE
     Dosage: UNK
     Route: 065
  10. MARIJUANA [Suspect]
     Active Substance: CANNABIS SATIVA SUBSP. INDICA TOP
     Dosage: UNK
     Route: 055
  11. PSILOCYBINE [Suspect]
     Active Substance: PSILOCYBINE
     Dosage: UNK
     Route: 065
  12. LSD [Suspect]
     Active Substance: LYSERGIDE
     Dosage: UNK
     Route: 065
  13. HYDROMORPHONE HYDROCHLORIDE. [Suspect]
     Active Substance: HYDROMORPHONE HYDROCHLORIDE
     Dosage: UNK
     Route: 065

REACTIONS (11)
  - Exposure to contaminated device [Unknown]
  - Fatigue [Unknown]
  - Antisocial behaviour [Unknown]
  - Euphoric mood [Unknown]
  - Aggression [Unknown]
  - Drug dependence [Unknown]
  - Nausea [Unknown]
  - Substance abuse [Unknown]
  - Emotional poverty [Unknown]
  - Flushing [Unknown]
  - Hyperhidrosis [Unknown]
